FAERS Safety Report 9256757 (Version 2)
Quarter: 2014Q1

REPORT INFORMATION
  Report Type: Spontaneous
  Country: US (occurrence: US)
  Receive Date: 20130426
  Receipt Date: 20140205
  Transmission Date: 20141002
  Serious: No
  Sender: FDA-Public Use
  Company Number: US-ASTRAZENECA-2013SE27736

PATIENT
  Age: 789 Month
  Sex: Female

DRUGS (10)
  1. NEXIUM [Suspect]
     Indication: GASTROOESOPHAGEAL REFLUX DISEASE
     Route: 048
     Dates: start: 20020302
  2. NEXIUM [Suspect]
     Indication: GASTROOESOPHAGEAL REFLUX DISEASE
     Route: 048
     Dates: start: 2003, end: 2009
  3. AMITRIPTYLINE [Concomitant]
     Route: 048
     Dates: start: 20020116
  4. CELEXA [Concomitant]
     Route: 048
     Dates: start: 20020321
  5. ZYRTEC [Concomitant]
     Route: 048
     Dates: start: 20020414
  6. HYDROCODONE/APAP [Concomitant]
     Indication: PAIN
     Dosage: 5/500MG
     Route: 048
     Dates: start: 20020509
  7. CEPHALEXIN [Concomitant]
     Route: 048
     Dates: start: 20020831
  8. CARISOPRODOL [Concomitant]
     Indication: MUSCLE SPASMS
     Route: 048
     Dates: start: 20010726
  9. ACIPHEX [Concomitant]
     Route: 048
     Dates: start: 20021217
  10. ULTRACET [Concomitant]
     Route: 048
     Dates: start: 20030311

REACTIONS (7)
  - Osteoporosis [Unknown]
  - Bone disorder [Unknown]
  - Compression fracture [Unknown]
  - Lumbar spinal stenosis [Unknown]
  - Intervertebral disc degeneration [Unknown]
  - Osteopenia [Unknown]
  - Post laminectomy syndrome [Unknown]
